FAERS Safety Report 7450272-4 (Version None)
Quarter: 2011Q2

REPORT INFORMATION
  Report Type: 
  Country: None (occurrence: None)
  Receive Date: 20110428
  Receipt Date: 20110428
  Transmission Date: 20111010
  Serious: Yes (Life-Threatening, Hospitalization)
  Sender: FDA-Public Use
  Company Number: None

PATIENT
  Sex: Female
  Weight: 53.0709 kg

DRUGS (1)
  1. EPINEPHRINE [Suspect]
     Dosage: 1 MG IV
     Route: 042

REACTIONS (8)
  - ANAPHYLACTIC REACTION [None]
  - SINUS BRADYCARDIA [None]
  - TACHYARRHYTHMIA [None]
  - UNRESPONSIVE TO STIMULI [None]
  - DYSPNOEA [None]
  - VENTRICULAR TACHYCARDIA [None]
  - SINUS TACHYCARDIA [None]
  - STRIDOR [None]
